FAERS Safety Report 4263266-7 (Version None)
Quarter: 2004Q1

REPORT INFORMATION
  Report Type: 
  Country: None (occurrence: None)
  Receive Date: 20040105
  Receipt Date: 20031107
  Transmission Date: 20041129
  Serious: Yes (Hospitalization, Other)
  Sender: FDA-Public Use
  Company Number: JP-GLAXOSMITHKLINE-B0314653A

PATIENT
  Age: 42 Year
  Sex: Female
  Weight: 53 kg

DRUGS (6)
  1. ZEFIX [Suspect]
     Indication: HEPATITIS B
     Dosage: 100MG PER DAY
     Route: 048
     Dates: start: 20031003, end: 20031008
  2. GLYBURIDE [Suspect]
     Indication: DIABETES MELLITUS
     Route: 048
     Dates: start: 20030801, end: 20031010
  3. LANSOPRAZOLE [Concomitant]
     Indication: PROPHYLAXIS AGAINST GASTROINTESTINAL ULCER
     Dosage: 30MG PER DAY
     Route: 048
     Dates: start: 20030904
  4. FERROUS CITRATE [Concomitant]
     Indication: ANAEMIA
     Dosage: 100MG PER DAY
     Route: 048
     Dates: start: 20030904
  5. URSODESOXYCHOLIC ACID [Concomitant]
     Indication: HEPATITIS B
     Dosage: 300MG PER DAY
     Route: 048
  6. MONOAMMONIUM GLYCYRRHIZINATE [Concomitant]
     Indication: HEPATITIS B
     Dosage: 40ML PER DAY
     Route: 042

REACTIONS (5)
  - ABDOMINAL PAIN [None]
  - ALOPECIA [None]
  - HEPATIC FUNCTION ABNORMAL [None]
  - NAUSEA [None]
  - OESOPHAGEAL VARICES HAEMORRHAGE [None]
